FAERS Safety Report 7208546-8 (Version None)
Quarter: 2011Q1

REPORT INFORMATION
  Report Type: 
  Country: None (occurrence: None)
  Receive Date: 20110104
  Receipt Date: 20101115
  Transmission Date: 20110831
  Serious: Yes (Other)
  Sender: FDA-Public Use
  Company Number: US-BAYER-201014072NA

PATIENT
  Sex: Female
  Weight: 55 kg

DRUGS (49)
  1. YAZ [Suspect]
     Indication: PRODUCT USED FOR UNKNOWN INDICATION
     Route: 048
     Dates: start: 20070101, end: 20090615
  2. PROMETHAZINE [Concomitant]
     Dates: start: 20061201
  3. METOCLOPRAMID [Concomitant]
     Dates: start: 20061201
  4. BUPROPION [Concomitant]
     Dates: start: 20090301
  5. OXYCODONE HCL AND ACETAMINOPHEN [Concomitant]
     Dates: start: 20090601
  6. IBUPROFEN [Concomitant]
     Dates: start: 20061201
  7. ONDANSETRON [Concomitant]
     Dates: start: 20080201
  8. BIAXIN [Concomitant]
     Indication: PRODUCT USED FOR UNKNOWN INDICATION
     Dates: start: 20080101
  9. POTASSIUM [POTASSIUM] [Concomitant]
     Dates: start: 20070101
  10. KINEVAC [Concomitant]
     Dosage: HEPATOBILIARY SCAN
     Dates: start: 20091007, end: 20091007
  11. COTRIM [Concomitant]
     Dates: start: 20060601
  12. BUPROPION [Concomitant]
     Dates: start: 20090301
  13. OXYCODONE [Concomitant]
     Dates: start: 20080201
  14. TRETINOIN [Concomitant]
     Dates: start: 20060601
  15. DRYSOL [Concomitant]
     Dates: start: 20080401
  16. CLINDAMYCIN [Concomitant]
     Dates: start: 20090601
  17. DOXYCYCLIN [Concomitant]
     Dates: start: 20090101
  18. LOESTRIN 1.5/30 [Concomitant]
     Dates: start: 20080901
  19. LOESTRIN 1.5/30 [Concomitant]
     Dates: start: 20081101
  20. ALPRAZOLAM [Concomitant]
     Dates: start: 20090601
  21. DOXYCYCLIN [Concomitant]
     Dates: start: 20090101
  22. BACTRIM DS [Concomitant]
     Dates: start: 20090101
  23. UNCODEABLE ^UNCLASSIFIABLE^ [Concomitant]
     Dosage: SPORADICALLY
  24. CLINDAMYCIN [Concomitant]
     Dates: start: 20090601
  25. CLINDAMYCIN [Concomitant]
     Dates: start: 20081001
  26. LAMICTAL [Concomitant]
  27. UNCODEABLE ^UNCLASSIFIABLE^ [Concomitant]
     Dosage: SPORADICALLY
  28. BUPROPION [Concomitant]
     Dates: start: 20090301
  29. DOXYCYCLIN [Concomitant]
     Indication: PRODUCT USED FOR UNKNOWN INDICATION
     Dates: start: 20060101
  30. TRAMADOL [Concomitant]
     Dates: start: 20060801
  31. DOXYCYCLINE [Concomitant]
     Dates: start: 20061001
  32. ZOFRAN [Concomitant]
     Dates: start: 20061201
  33. ALPRAZOLAM [Concomitant]
     Dates: start: 20090601
  34. LEVAQUIN [Concomitant]
     Dates: start: 20080201
  35. DOXYCYCLIN [Concomitant]
     Dates: start: 20100101
  36. POTASSIUM [Concomitant]
     Dates: start: 20070101
  37. ALPRAZOLAM [Concomitant]
     Dates: start: 20090601
  38. YASMIN [Suspect]
     Indication: PRODUCT USED FOR UNKNOWN INDICATION
     Route: 048
     Dates: start: 20040101, end: 20060615
  39. DOXYCYCLIN [Concomitant]
     Dates: start: 20100101
  40. OXYCODONE [Concomitant]
     Dates: start: 20060601
  41. CLINDAMYCIN [Concomitant]
     Dates: start: 20090601
  42. ACCUTANE [Concomitant]
  43. DOXYCYCLIN [Concomitant]
     Dates: start: 20081001
  44. SERTRALINE [Concomitant]
     Dates: start: 20080101
  45. METHYLPREDNISOLONE ACETATE [Concomitant]
     Dates: start: 20090601
  46. DOXYCYCLIN [Concomitant]
     Dates: start: 20081201
  47. ADDERALL 10 [Concomitant]
  48. LOESTRIN 1.5/30 [Concomitant]
     Dates: start: 20081101
  49. DOXYCYCLIN [Concomitant]
     Dates: start: 20081201

REACTIONS (3)
  - NAUSEA [None]
  - GALLBLADDER DISORDER [None]
  - ABDOMINAL DISCOMFORT [None]
